FAERS Safety Report 5296236-0 (Version None)
Quarter: 2007Q2

REPORT INFORMATION
  Report Type: 
  Country: None (occurrence: None)
  Receive Date: 20070413
  Receipt Date: 20070405
  Transmission Date: 20071010
  Serious: Yes (Hospitalization)
  Sender: FDA-Public Use
  Company Number: FR-GLAXOSMITHKLINE-B0465959A

PATIENT
  Age: 89 Year
  Sex: Female
  Weight: 62 kg

DRUGS (13)
  1. ARIXTRA [Suspect]
     Dosage: 7.5MG PER DAY
     Route: 058
     Dates: start: 20070210, end: 20070226
  2. VENTOLIN [Concomitant]
     Indication: CHRONIC OBSTRUCTIVE PULMONARY DISEASE
     Route: 055
  3. ASPEGIC 1000 [Concomitant]
     Dosage: 100MG PER DAY
     Route: 048
     Dates: end: 20070210
  4. HEMIGOXINE NATIVELLE [Concomitant]
     Dosage: 187.5MCG PER DAY
     Route: 048
  5. LASIX [Concomitant]
     Indication: ESSENTIAL HYPERTENSION
     Dosage: 40MG PER DAY
     Route: 048
  6. PERINDOPRIL ERBUMINE [Concomitant]
     Indication: ESSENTIAL HYPERTENSION
     Dosage: 4MG PER DAY
     Route: 048
  7. AMARYL [Concomitant]
     Dosage: .5MG PER DAY
     Route: 048
  8. DIFFU K [Concomitant]
     Dosage: 1.2G PER DAY
  9. OMEPRAZOLE [Concomitant]
     Dosage: 10MG PER DAY
  10. PROPOFOL [Concomitant]
  11. FORADIL [Concomitant]
  12. PULMICORT [Concomitant]
  13. VEINAMITOL [Concomitant]

REACTIONS (3)
  - ANAEMIA [None]
  - HAEMATOMA [None]
  - RENAL FAILURE ACUTE [None]
